FAERS Safety Report 23565201 (Version 1)
Quarter: 2024Q1

REPORT INFORMATION
  Report Type: Spontaneous
  Country: US (occurrence: None)
  Receive Date: 20240223
  Receipt Date: 20240223
  Transmission Date: 20240409
  Serious: Yes (Other)
  Sender: FDA-Public Use
  Company Number: None

PATIENT
  Age: 55 Year
  Sex: Female
  Weight: 74.25 kg

DRUGS (1)
  1. ROBITUSSIN ELDERBERRY MAXIMUM STRENGTH COUGH PLUS CHEST CONGESTION DM [Suspect]
     Active Substance: DEXTROMETHORPHAN HYDROBROMIDE\GUAIFENESIN
     Indication: Nasopharyngitis
     Dosage: FREQUENCY : EVERY 4 HOURS;?
     Route: 048
     Dates: start: 20240122, end: 20240122

REACTIONS (3)
  - Diarrhoea [None]
  - Chills [None]
  - Nausea [None]

NARRATIVE: CASE EVENT DATE: 20240122
